FAERS Safety Report 7289889-9 (Version None)
Quarter: 2011Q1

REPORT INFORMATION
  Report Type: 
  Country: None (occurrence: None)
  Receive Date: 20110214
  Receipt Date: 20110131
  Transmission Date: 20110831
  Serious: Yes (Hospitalization)
  Sender: FDA-Public Use
  Company Number: US-RANBAXY-2011RR-41340

PATIENT
  Sex: Female

DRUGS (3)
  1. CIPROFLOXACIN [Suspect]
     Indication: URINARY TRACT INFECTION
     Dosage: 500 MG, BID
     Route: 065
  2. LEVAQUIN [Suspect]
     Indication: CYSTITIS
     Dosage: UNK
     Route: 048
     Dates: start: 19990101, end: 20091231
  3. LEVAQUIN [Suspect]
     Indication: URINARY TRACT INFECTION

REACTIONS (9)
  - PAIN IN EXTREMITY [None]
  - BURSITIS [None]
  - MENISCUS LESION [None]
  - TRIGGER FINGER [None]
  - TENDON DISORDER [None]
  - TENDONITIS [None]
  - JOINT INJURY [None]
  - TENDON RUPTURE [None]
  - ROTATOR CUFF SYNDROME [None]
